FAERS Safety Report 20790388 (Version 1)
Quarter: 2022Q2

REPORT INFORMATION
  Report Type: Spontaneous
  Country: BR (occurrence: BR)
  Receive Date: 20220505
  Receipt Date: 20220505
  Transmission Date: 20220721
  Serious: Yes (Other)
  Sender: FDA-Public Use
  Company Number: BR-BAYER-2022A065059

PATIENT
  Age: 38 Year
  Sex: Female

DRUGS (1)
  1. ULTRAVIST [Suspect]
     Active Substance: IOPROMIDE
     Indication: Angiogram
     Route: 042
     Dates: start: 20220420

REACTIONS (2)
  - Cough [Recovered/Resolved with Sequelae]
  - Eye oedema [Recovered/Resolved with Sequelae]

NARRATIVE: CASE EVENT DATE: 20220420
